FAERS Safety Report 17880406 (Version 2)
Quarter: 2020Q2

REPORT INFORMATION
  Report Type: Spontaneous
  Country: US (occurrence: US)
  Receive Date: 20200610
  Receipt Date: 20200612
  Transmission Date: 20200714
  Serious: No
  Sender: FDA-Public Use
  Company Number: US-PFIZER INC-2020221739

PATIENT
  Age: 39 Year
  Sex: Male

DRUGS (6)
  1. PREDNISOLONE. [Concomitant]
     Active Substance: PREDNISOLONE
     Indication: CHORIORETINITIS
     Dosage: UNK
     Route: 061
  2. PREDNISOLONE. [Concomitant]
     Active Substance: PREDNISOLONE
     Indication: IMMUNE RECONSTITUTION INFLAMMATORY SYNDROME
     Dosage: UNK (TAPERED APPROPRIATELY)
  3. FLUCONAZOLE. [Suspect]
     Active Substance: FLUCONAZOLE
     Indication: CRYPTOCOCCOSIS
     Dosage: 800 MG, DAILY
     Route: 048
  4. ATRIPLA [Suspect]
     Active Substance: EFAVIRENZ\EMTRICITABINE\TENOFOVIR DISOPROXIL FUMARATE
     Indication: HIV INFECTION
  5. FLUCONAZOLE. [Suspect]
     Active Substance: FLUCONAZOLE
     Indication: CHORIORETINITIS
     Dosage: 400 MG, DAILY
     Route: 048
  6. ATRIPLA [Suspect]
     Active Substance: EFAVIRENZ\EMTRICITABINE\TENOFOVIR DISOPROXIL FUMARATE
     Indication: CRYPTOCOCCOSIS
     Dosage: UNK

REACTIONS (2)
  - Product use in unapproved indication [Unknown]
  - Off label use [Unknown]
